FAERS Safety Report 24133623 (Version 1)
Quarter: 2024Q3

REPORT INFORMATION
  Report Type: Report from Study
  Country: CA (occurrence: CA)
  Receive Date: 20240724
  Receipt Date: 20240724
  Transmission Date: 20241017
  Serious: Yes (Death, Other)
  Sender: MYLAN
  Company Number: CA-MYLANLABS-2024M1067088

PATIENT
  Age: 85 Year
  Sex: Female

DRUGS (2)
  1. CLOZAPINE [Suspect]
     Active Substance: CLOZAPINE
     Indication: Product used for unknown indication
     Dosage: 12.5 MILLIGRAM, BID (12.5 MG TWICE DAILY)
     Route: 065
     Dates: start: 202402
  2. CLOZAPINE [Suspect]
     Active Substance: CLOZAPINE
     Dosage: 31.25 MILLIGRAM, PM (31.25 MG AT BEDTIME)
     Route: 065

REACTIONS (2)
  - Death [Fatal]
  - Supranuclear palsy [Unknown]

NARRATIVE: CASE EVENT DATE: 20240703
